FAERS Safety Report 10416279 (Version 1)
Quarter: 2014Q3

REPORT INFORMATION
  Report Type: Spontaneous
  Country: US (occurrence: None)
  Receive Date: 20140827
  Receipt Date: 20140827
  Transmission Date: 20150326
  Serious: No
  Sender: FDA-Public Use
  Company Number: None

PATIENT
  Age: 63 Year
  Sex: Female

DRUGS (2)
  1. LIDOCAINE. [Suspect]
     Active Substance: LIDOCAINE
     Indication: MYELITIS TRANSVERSE
     Dosage: ONCE DAILY APPLIED AS MEDICATED PATCH TO SKIN
     Route: 061
  2. LIDOCAINE. [Suspect]
     Active Substance: LIDOCAINE
     Indication: NEURALGIA
     Dosage: ONCE DAILY APPLIED AS MEDICATED PATCH TO SKIN
     Route: 061

REACTIONS (5)
  - Lip pain [None]
  - Hypophagia [None]
  - Lip swelling [None]
  - Cheilitis [None]
  - Drug ineffective [None]

NARRATIVE: CASE EVENT DATE: 20140821
